FAERS Safety Report 6593240-7 (Version None)
Quarter: 2010Q1

REPORT INFORMATION
  Report Type: 
  Country: None (occurrence: None)
  Receive Date: 20100222
  Receipt Date: 20100212
  Transmission Date: 20100710
  Serious: Yes (Hospitalization, Other)
  Sender: FDA-Public Use
  Company Number: US-SANOFI-AVENTIS-2009SA008840

PATIENT
  Age: 67 Year
  Sex: Male
  Weight: 77.27 kg

DRUGS (8)
  1. PLAVIX [Suspect]
     Route: 048
     Dates: start: 20090506
  2. ASPIRIN [Concomitant]
  3. QUINAPRIL [Concomitant]
     Indication: CARDIOMYOPATHY
  4. COREG [Concomitant]
     Indication: CARDIOMYOPATHY
  5. ALDACTONE [Concomitant]
     Indication: CARDIOMYOPATHY
  6. CRESTOR [Concomitant]
     Indication: HIGH DENSITY LIPOPROTEIN
  7. METFORMIN [Concomitant]
  8. FLOVENT [Concomitant]
     Indication: CHRONIC OBSTRUCTIVE PULMONARY DISEASE

REACTIONS (5)
  - APNOEA [None]
  - BRADYARRHYTHMIA [None]
  - HYPOTENSION [None]
  - LOSS OF CONSCIOUSNESS [None]
  - SYNCOPE [None]
